FAERS Safety Report 6973625-7 (Version None)
Quarter: 2010Q3

REPORT INFORMATION
  Report Type: 
  Country: None (occurrence: None)
  Receive Date: 20100909
  Receipt Date: 20100826
  Transmission Date: 20110219
  Serious: Yes (Hospitalization)
  Sender: FDA-Public Use
  Company Number: US-ELI_LILLY_AND_COMPANY-US201007005746

PATIENT
  Sex: Female
  Weight: 46.712 kg

DRUGS (4)
  1. FORTEO [Suspect]
     Indication: OSTEOPOROSIS
     Dosage: 20 UG, DAILY (1/D)
  2. LEVOXYL [Concomitant]
     Indication: HYPOTHYROIDISM
     Dosage: 125 MG, UNK
  3. ASPIRIN [Concomitant]
     Dosage: 81 MG, UNK
  4. DITROPAN [Concomitant]
     Dosage: 5 MG, UNK

REACTIONS (4)
  - ANAEMIA [None]
  - DEHYDRATION [None]
  - RENAL FAILURE ACUTE [None]
  - URINARY TRACT INFECTION [None]
